FAERS Safety Report 23937914 (Version 1)
Quarter: 2024Q2

REPORT INFORMATION
  Report Type: Spontaneous
  Country: US (occurrence: None)
  Receive Date: 20240604
  Receipt Date: 20240604
  Transmission Date: 20240716
  Serious: Yes (Death, Life-Threatening, Hospitalization, Other)
  Sender: FDA-Public Use
  Company Number: 2024A129090

PATIENT
  Age: 736 Month
  Sex: Female
  Weight: 130 kg

DRUGS (1)
  1. SELUMETINIB [Suspect]
     Active Substance: SELUMETINIB
     Route: 048
     Dates: end: 20240506

REACTIONS (12)
  - Respiratory failure [Fatal]
  - Acute kidney injury [Unknown]
  - Dyspnoea [Unknown]
  - Pulmonary hypertension [Unknown]
  - Embolism [Unknown]
  - Pyrexia [Unknown]
  - Anaemia [Unknown]
  - Chest discomfort [Unknown]
  - Bacterial infection [Unknown]
  - Erythema [Unknown]
  - Pulmonary embolism [Unknown]
  - Ascites [Unknown]

NARRATIVE: CASE EVENT DATE: 20240504
